FAERS Safety Report 22142228 (Version 1)
Quarter: 2023Q1

REPORT INFORMATION
  Report Type: Spontaneous
  Country: AU (occurrence: AU)
  Receive Date: 20230327
  Receipt Date: 20230327
  Transmission Date: 20230418
  Serious: Yes (Other)
  Sender: FDA-Public Use
  Company Number: AU-PFM-2023-01591

PATIENT
  Age: 44 Year
  Sex: Female

DRUGS (10)
  1. ENCORAFENIB [Suspect]
     Active Substance: ENCORAFENIB
     Indication: Non-small cell lung cancer
     Dosage: 450 MG/DAY
     Route: 048
     Dates: start: 20220405
  2. BINIMETINIB [Suspect]
     Active Substance: BINIMETINIB
     Indication: Non-small cell lung cancer
     Dosage: 45 MG, BID (2/DAY)
     Route: 048
     Dates: start: 20220405
  3. IMPLANON [Suspect]
     Active Substance: ETONOGESTREL
     Indication: Contraception
     Dosage: 1 IMPLANT
     Route: 059
     Dates: start: 20220727
  4. SASANLIMAB [Suspect]
     Active Substance: SASANLIMAB
     Indication: Non-small cell lung cancer
     Dosage: 300 MG, AT INTERVAL OF 4 WEEKS
     Route: 058
     Dates: start: 20220405
  5. ERGOCALCIFEROL [Concomitant]
     Active Substance: ERGOCALCIFEROL
     Indication: Supplementation therapy
     Dosage: UNK
     Route: 048
     Dates: start: 202201
  6. SYSTANE ULTRA [Concomitant]
     Active Substance: POLYETHYLENE GLYCOL 400\PROPYLENE GLYCOL
     Indication: Dry eye
     Dosage: UNK
     Route: 047
  7. ELEVIT [MINERALS NOS;VITAMINS NOS] [Concomitant]
     Indication: Supplementation therapy
     Dosage: UNK
     Route: 048
     Dates: start: 202202
  8. ACETAMINOPHEN [Concomitant]
     Active Substance: ACETAMINOPHEN
     Indication: Pyrexia
     Dosage: UNK
     Route: 048
     Dates: start: 202204
  9. AMOXICILLIN\CLAVULANATE POTASSIUM [Concomitant]
     Active Substance: AMOXICILLIN\CLAVULANATE POTASSIUM
     Indication: Lower respiratory tract infection
     Dosage: UNK
     Route: 048
     Dates: start: 20220824
  10. AZITHROMYCIN [Concomitant]
     Active Substance: AZITHROMYCIN
     Indication: Lower respiratory tract infection
     Dosage: UNK
     Route: 048
     Dates: start: 20220824

REACTIONS (5)
  - Blood iron decreased [Unknown]
  - Vaginal haemorrhage [Recovered/Resolved]
  - Uterine leiomyoma [Unknown]
  - Haemoglobin decreased [Unknown]
  - Off label use [Unknown]

NARRATIVE: CASE EVENT DATE: 20220405
